FAERS Safety Report 9318320 (Version 1)
Quarter: 2013Q2

REPORT INFORMATION
  Report Type: Spontaneous
  Country: US (occurrence: US)
  Receive Date: 20130530
  Receipt Date: 20130530
  Transmission Date: 20140414
  Serious: No
  Sender: FDA-Public Use
  Company Number: US-GLAXOSMITHKLINE-A1011874A

PATIENT
  Age: 74 Year
  Sex: Female

DRUGS (5)
  1. VENTOLIN [Suspect]
     Indication: ASTHMA
     Dosage: 2PUFF TWICE PER DAY
     Route: 055
     Dates: start: 198302
  2. MONTELUKAST [Concomitant]
  3. PRILOSEC [Concomitant]
  4. MENEST [Concomitant]
  5. MEDROXYPROGESTERONE [Concomitant]

REACTIONS (2)
  - Burning sensation [Recovering/Resolving]
  - Throat irritation [Unknown]
